FAERS Safety Report 8922844 (Version 1)
Quarter: 2012Q4

REPORT INFORMATION
  Report Type: 
  Country: US (occurrence: US)
  Receive Date: 20121125
  Receipt Date: 20121125
  Transmission Date: 20130627
  Serious: Yes (Hospitalization, Other)
  Sender: FDA-Public Use
  Company Number: US-BAYER-2012-110035

PATIENT
  Age: 23 Year
  Sex: Female
  Weight: 94.33 kg

DRUGS (4)
  1. MIRENA [Suspect]
     Indication: CONTRACEPTION
     Dosage: 20 mcg/24hr, CONT
     Route: 015
     Dates: start: 2012, end: 20121015
  2. NAPROSYN [Concomitant]
     Dosage: 500 mg, BID
     Dates: end: 20121015
  3. FLEXERIL [Concomitant]
     Indication: MUSCLE SPASMS
     Dosage: 10 mg, TID
     Dates: end: 20121015
  4. HYDROCODONE [HYDROCODONE] [Concomitant]
     Indication: PAIN NOS
     Dosage: 5-500mg Q4H PRN
     Dates: end: 20121015

REACTIONS (4)
  - Device dislocation [Recovered/Resolved]
  - Fallopian tube cyst [Recovered/Resolved]
  - Adnexal torsion [Recovered/Resolved]
  - Pelvic pain [Recovered/Resolved]
